FAERS Safety Report 4307925-6 (Version None)
Quarter: 2004Q1

REPORT INFORMATION
  Report Type: 
  Country: None (occurrence: None)
  Receive Date: 20040301
  Receipt Date: 20030106
  Transmission Date: 20041129
  Serious: No
  Sender: FDA-Public Use
  Company Number: US-BRISTOL-MYERS SQUIBB COMPANY-12152112

PATIENT
  Age: 77 Year
  Sex: Male
  Weight: 91 kg

DRUGS (11)
  1. GLUCOPHAGE [Suspect]
     Indication: DIABETES MELLITUS
     Route: 048
     Dates: start: 20021001
  2. SYNTHROID [Concomitant]
  3. CELEBREX [Concomitant]
  4. GLUCOSAMINE [Concomitant]
  5. MULTIVITAMIN WITH MINERALS [Concomitant]
  6. MEVACOR [Concomitant]
  7. QUININE SULFATE [Concomitant]
  8. FLOMAX [Concomitant]
  9. PRILOSEC [Concomitant]
  10. ALLEGRA [Concomitant]
  11. FLONASE [Concomitant]

REACTIONS (1)
  - LOOSE STOOLS [None]
